FAERS Safety Report 9973661 (Version 1)
Quarter: 2014Q1

REPORT INFORMATION
  Report Type: Spontaneous
  Country: US (occurrence: None)
  Receive Date: 20140214
  Receipt Date: 20140214
  Transmission Date: 20141002
  Serious: Yes (Other)
  Sender: FDA-Public Use
  Company Number: US-013396

PATIENT
  Age: 78 Year
  Sex: Male
  Weight: 124 kg

DRUGS (5)
  1. PICO-SALAX (NOT SPECIFIED) [Suspect]
     Indication: BOWEL PREPARATION
     Dosage: 1ST DOSE AT 1PM, 2ND DOSE AT 7PM
     Dates: start: 20131017, end: 20131017
  2. VITAMIN C /0008001 [Concomitant]
  3. PROBIOTICS [Concomitant]
  4. MINERAL SUPPLEMENTS [Concomitant]
  5. VITAMINS [Concomitant]

REACTIONS (1)
  - Drug ineffective [None]
